FAERS Safety Report 12647444 (Version 1)
Quarter: 2016Q3

REPORT INFORMATION
  Report Type: Spontaneous
  Country: BR (occurrence: BR)
  Receive Date: 20160812
  Receipt Date: 20160812
  Transmission Date: 20161109
  Serious: Yes (Hospitalization)
  Sender: FDA-Public Use
  Company Number: BR-009507513-1608BRA006347

PATIENT
  Sex: Female

DRUGS (14)
  1. PHENOBARBITAL. [Concomitant]
     Active Substance: PHENOBARBITAL
     Dosage: 33 GTT, Q12H
  2. SINGULAIR [Suspect]
     Active Substance: MONTELUKAST SODIUM
     Indication: SINUSITIS
     Dosage: 5 MG, UNK
     Route: 050
  3. LACTULON [Concomitant]
     Dosage: 5 ML, Q6H
  4. VITAMINS (UNSPECIFIED) [Concomitant]
     Active Substance: VITAMINS
     Dosage: 12 GTT, Q6H
  5. DIPYRONE [Concomitant]
     Active Substance: DIPYRONE
     Dosage: 13 GTT, Q6H
  6. VALPROIC ACID. [Concomitant]
     Active Substance: VALPROIC ACID
     Dosage: SUSPENSION, 3.5 ML, Q8H
  7. SPIRONOLACTONE. [Concomitant]
     Active Substance: SPIRONOLACTONE
     Dosage: 25 MG (HALF TABLET), Q12H
     Route: 048
  8. RANITIDINE. [Concomitant]
     Active Substance: RANITIDINE
     Dosage: UNK
  9. SPIRONOLACTONE. [Concomitant]
     Active Substance: SPIRONOLACTONE
     Dosage: SUSPENSION, 2 ML, Q12H
  10. DOMPERIDONE [Concomitant]
     Active Substance: DOMPERIDONE
     Dosage: SUSPENSION, 3.5 ML, Q6H
  11. FIBER [Concomitant]
     Active Substance: PSYLLIUM HUSK
     Dosage: 1 SACHET, Q12H
  12. ATROPINE. [Concomitant]
     Active Substance: ATROPINE
     Dosage: 3 GTT, Q8H
     Route: 060
  13. EPITEZAN [Concomitant]
     Dosage: 1 APPLICATION IN EACH EYE, Q12H
  14. DIMETHICONE. [Concomitant]
     Active Substance: DIMETHICONE
     Dosage: 12 GTT, Q6H

REACTIONS (4)
  - Wrong technique in product usage process [Unknown]
  - Product quality issue [Unknown]
  - Condition aggravated [Unknown]
  - Product use issue [Unknown]

NARRATIVE: CASE EVENT DATE: 2016
